FAERS Safety Report 12253240 (Version 1)
Quarter: 2016Q2

REPORT INFORMATION
  Report Type: Spontaneous
  Country: US (occurrence: US)
  Receive Date: 20160411
  Receipt Date: 20160411
  Transmission Date: 20160815
  Serious: Yes (Other)
  Sender: FDA-Public Use
  Company Number: US-GLAXOSMITHKLINE-US2016GSK045971

PATIENT
  Age: 56 Year
  Sex: Male

DRUGS (1)
  1. COREG CR [Suspect]
     Active Substance: CARVEDILOL PHOSPHATE
     Indication: MYOCARDIAL INFARCTION
     Dosage: UNK UNK, U
     Dates: start: 2009

REACTIONS (4)
  - Implantable defibrillator replacement [Unknown]
  - Swelling [Unknown]
  - Laceration [Unknown]
  - Pain [Unknown]

NARRATIVE: CASE EVENT DATE: 201602
